FAERS Safety Report 9422443 (Version 1)
Quarter: 2013Q3

REPORT INFORMATION
  Report Type: Report from Study
  Country: US (occurrence: US)
  Receive Date: 20130726
  Receipt Date: 20130726
  Transmission Date: 20140515
  Serious: Yes (Other)
  Sender: FDA-Public Use
  Company Number: US-ROCHE-1247384

PATIENT
  Age: 75 Year
  Sex: Female
  Weight: 80.36 kg

DRUGS (6)
  1. KADCYLA [Suspect]
     Indication: PRODUCT USED FOR UNKNOWN INDICATION
     Route: 065
  2. HERCEPTIN [Suspect]
     Indication: HER-2 POSITIVE BREAST CANCER
     Route: 042
     Dates: start: 201002, end: 20130626
  3. LIPITOR [Concomitant]
     Route: 048
  4. AROMASIN [Concomitant]
     Route: 048
     Dates: end: 20130626
  5. ZYRTEC [Concomitant]
     Route: 048
  6. OMEPRAZOLE [Concomitant]
     Route: 048

REACTIONS (2)
  - Metastases to bone [Unknown]
  - Disease recurrence [Not Recovered/Not Resolved]
